FAERS Safety Report 5874788-7 (Version None)
Quarter: 2008Q3

REPORT INFORMATION
  Report Type: 
  Country: None (occurrence: None)
  Receive Date: 20080908
  Receipt Date: 20080908
  Transmission Date: 20090109
  Serious: No
  Sender: FDA-Public Use
  Company Number: None

PATIENT

DRUGS (1)
  1. RISPERDAL [Suspect]
     Indication: AUTISM
     Dosage: 2MG BID PO
     Route: 048
     Dates: start: 20080801

REACTIONS (1)
  - DRUG EFFECT DECREASED [None]
